FAERS Safety Report 24033499 (Version 1)
Quarter: 2024Q3

REPORT INFORMATION
  Report Type: Spontaneous
  Country: GB (occurrence: GB)
  Receive Date: 20240701
  Receipt Date: 20240701
  Transmission Date: 20241017
  Serious: Yes (Hospitalization, Other)
  Sender: ORGANON
  Company Number: None

PATIENT
  Age: 80 Year
  Sex: Female

DRUGS (35)
  1. ALENDRONATE SODIUM [Suspect]
     Active Substance: ALENDRONATE SODIUM
     Dosage: ONE TO BE TAKEN ON THE SAME DAY EACH WEEK. SHOULD BE SWALLOWED WHOLE WITH PLENTY OF WATER WHILE SITT
     Route: 048
  2. ALBUTEROL [Concomitant]
     Active Substance: ALBUTEROL
     Dosage: 2.5 MG/2.5 ML UNIT DOSE VIALS, 4 AS NECESSARY
  3. ALBUTEROL [Concomitant]
     Active Substance: ALBUTEROL
     Dosage: UNK
  4. MIRTAZAPINE [Concomitant]
     Active Substance: MIRTAZAPINE
     Dosage: 45 MILLIGRAM, AT NIGHT (QD)
  5. LACTULOSE [Concomitant]
     Active Substance: LACTULOSE
     Dosage: UNK
  6. CLOBETASONE [Concomitant]
     Active Substance: CLOBETASONE
     Dosage: UNK
  7. ALBUTEROL [Concomitant]
     Active Substance: ALBUTEROL
     Indication: Dyspnoea
     Dosage: 100 MICROGRAMS/DOSE INHALER CFC FREE PUFFS, 4 AS NECESSARY
  8. SENNA+ [Concomitant]
     Dosage: UNK
  9. FUROSEMIDE [Concomitant]
     Active Substance: FUROSEMIDE
     Dosage: 40 MILLIGRAM, EACH MORNING (QD)
  10. SENNA+ [Concomitant]
     Dosage: 7.5 MILLIGRAM, AT NIGHT (BID)
  11. DOCUSATE [Concomitant]
     Active Substance: DOCUSATE
     Dosage: 100 MILLIGRAM, BID
  12. APIXABAN [Concomitant]
     Active Substance: APIXABAN
     Dosage: 2.5 MILLIGRAM, BID
  13. ACETYLCYSTEINE [Concomitant]
     Active Substance: ACETYLCYSTEINE
     Dosage: 600 MILLIGRAM, SUGAR FREE (QD)
  14. MIRABEGRON [Concomitant]
     Active Substance: MIRABEGRON
     Dosage: 50 MILLIGRAM, QD
  15. IVABRADINE [Concomitant]
     Active Substance: IVABRADINE
     Dosage: 5 MILLIGRAM, TAKE ONE IN THE MORNING AND TAKE ONE AT NIGHT (BID)
  16. IBUPROFEN [Concomitant]
     Active Substance: IBUPROFEN
     Dosage: UNK
  17. SODIUM CHLORIDE [Concomitant]
     Active Substance: SODIUM CHLORIDE
     Indication: Dyspnoea
     Dosage: 0.9% NEBULISER LIQUID 2.5 ML UNIT DOSE AMPOULES 2 X 2.5 ML, 4 AS NECESSARY
  18. BECLOMETHASONE DIPROPIONATE\FORMOTEROL FUMARATE\GLYCOPYRROLATE [Concomitant]
     Active Substance: BECLOMETHASONE DIPROPIONATE\FORMOTEROL FUMARATE\GLYCOPYRROLATE
     Dosage: 87/5/ 9 MICROGRAMS/DOSE INHALER PUFFS
  19. IPRATROPIUM BROMIDE [Concomitant]
     Active Substance: IPRATROPIUM BROMIDE\IPRATROPIUM BROMIDE ANHYDROUS
     Indication: Dyspnoea
     Dosage: 500 MICROGRAMS/2 ML NEBULISER LIQUID UNIT DOSE VIALS ONE TO BE USED, NEBULISER FOUR TIMES A DAY PRN
  20. IBUPROFEN [Concomitant]
     Active Substance: IBUPROFEN
     Dosage: 10% APPLY UP TO THREE TIMES A DAY (TID)- USES FOR ANKLES PRN
  21. CALCIUM CARBONATE\CHOLECALCIFEROL [Concomitant]
     Active Substance: CALCIUM CARBONATE\CHOLECALCIFEROL
     Dosage: 1500 MG/400 UNIT
  22. THEOPHYLLINE ANHYDROUS [Concomitant]
     Active Substance: THEOPHYLLINE ANHYDROUS
     Dosage: 200 MILLIGRAM, BID
  23. IPRATROPIUM [Concomitant]
     Active Substance: IPRATROPIUM
     Dosage: UNK
  24. GABAPENTIN [Concomitant]
     Active Substance: GABAPENTIN
     Dosage: 100 MILLIGRAM, Q3D
  25. RHAMNUS PURSHIANA BARK EXTRACT [Concomitant]
     Active Substance: RHAMNUS PURSHIANA BARK EXTRACT
     Dosage: UNK
  26. BISOPROLOL [Concomitant]
     Active Substance: BISOPROLOL\BISOPROLOL FUMARATE
     Dosage: 1.25 MILLIGRAM, QD
  27. RANOLAZINE [Concomitant]
     Active Substance: RANOLAZINE
     Dosage: 500 MILLIGRAM, BID
  28. ACETAMINOPHEN [Concomitant]
     Active Substance: ACETAMINOPHEN
     Dosage: ONE OR TWO TO BE TAKEN EVERY 4 TO 6 HOURS WHEN NECESSARY
  29. ATORVASTATIN [Concomitant]
     Active Substance: ATORVASTATIN
     Dosage: 80 MILLIGRAM, QD
  30. LANSOPRAZOLE [Concomitant]
     Active Substance: LANSOPRAZOLE
     Dosage: 30 MILLIGRAM, EACH MORNING (QD)
  31. AZITHROMYCIN [Concomitant]
     Active Substance: AZITHROMYCIN
     Dosage: N ON A MONDAY, WEDNESDAY AND FRIDAY (Q3W)
  32. LACTULOSE [Concomitant]
     Active Substance: LACTULOSE
     Dosage: 3.1-3.7 G/5 ML ORAL SOLUTION
  33. NITROGLYCERIN [Concomitant]
     Active Substance: NITROGLYCERIN
     Dosage: 5 MG/24 HOURS
  34. CLOBETASONE [Concomitant]
     Active Substance: CLOBETASONE
     Dosage: 0.05% LEGS AND ARMS EVERY OTHER DAY
  35. NITROGLYCERIN [Concomitant]
     Active Substance: NITROGLYCERIN
     Dosage: 400 MICROGRAMS/DOSE PUMP SUBLINGUAL SPRAY SPRAY ONE OR TWO DOSES UNDER TONGUE WHEN ANGINA OCCURS AND
     Route: 060

REACTIONS (3)
  - Burn oral cavity [Unknown]
  - Burn oesophageal [Recovered/Resolved]
  - Ageusia [Recovered/Resolved]
